FAERS Safety Report 4509840-1 (Version None)
Quarter: 2004Q4

REPORT INFORMATION
  Report Type: 
  Country: None (occurrence: None)
  Receive Date: 20041119
  Receipt Date: 20041103
  Transmission Date: 20050328
  Serious: Yes (Other)
  Sender: FDA-Public Use
  Company Number: EWC040840387

PATIENT
  Age: 75 Year
  Sex: Female

DRUGS (10)
  1. FORTEO [Suspect]
     Indication: OSTEOPOROSIS
     Dosage: 20 UG/1 DAY
     Dates: start: 20030820, end: 20040823
  2. CORTISONE [Concomitant]
  3. DIGOXIN [Concomitant]
  4. SOTALOL HYDROCHLORIDE [Concomitant]
  5. CALCIUM CARBONATE + VITAMIN D [Concomitant]
  6. CHLOROQUINE PHOSPHATE [Concomitant]
  7. WARFARIN [Concomitant]
  8. PARACETAMOL [Concomitant]
  9. CODEINE PHOSPHATE [Concomitant]
  10. OXAZEPAM [Concomitant]

REACTIONS (5)
  - BACK PAIN [None]
  - CONDITION AGGRAVATED [None]
  - DYSPNOEA [None]
  - SPEECH DISORDER [None]
  - SYSTEMIC LUPUS ERYTHEMATOSUS [None]
